FAERS Safety Report 16711472 (Version 2)
Quarter: 2019Q3

REPORT INFORMATION
  Report Type: Report from Study
  Country: US (occurrence: US)
  Receive Date: 20190816
  Receipt Date: 20190827
  Transmission Date: 20191004
  Serious: No
  Sender: FDA-Public Use
  Company Number: US-SA-2019SA220680

PATIENT
  Age: 32 Year
  Sex: Female

DRUGS (7)
  1. NORCO [Concomitant]
     Active Substance: ACETAMINOPHEN\HYDROCODONE BITARTRATE
  2. DUPILUMAB [Suspect]
     Active Substance: DUPILUMAB
     Indication: DERMATITIS ATOPIC
  3. STELARA [Concomitant]
     Active Substance: USTEKINUMAB
     Indication: ECZEMA
  4. DUPILUMAB [Suspect]
     Active Substance: DUPILUMAB
     Indication: ECZEMA
     Dosage: 300 MG, QOW
     Route: 058
     Dates: start: 2019
  5. HUMIRA [Concomitant]
     Active Substance: ADALIMUMAB
     Indication: ECZEMA
  6. OTEZLA [Concomitant]
     Active Substance: APREMILAST
     Indication: ECZEMA
  7. DUPILUMAB [Suspect]
     Active Substance: DUPILUMAB
     Indication: PUSTULAR PSORIASIS
     Dosage: 600 MG, 1X
     Route: 058
     Dates: start: 20190508, end: 20190508

REACTIONS (9)
  - Psoriasis [Not Recovered/Not Resolved]
  - Fatigue [Not Recovered/Not Resolved]
  - Product dose omission [Not Recovered/Not Resolved]
  - Eczema [Not Recovered/Not Resolved]
  - Product use in unapproved indication [Unknown]
  - Dermatitis psoriasiform [Not Recovered/Not Resolved]
  - Discomfort [Not Recovered/Not Resolved]
  - Parosmia [Unknown]
  - Sleep disorder [Not Recovered/Not Resolved]

NARRATIVE: CASE EVENT DATE: 2019
